FAERS Safety Report 12858350 (Version 1)
Quarter: 2016Q4

REPORT INFORMATION
  Report Type: Spontaneous
  Country: US (occurrence: US)
  Receive Date: 20161018
  Receipt Date: 20161018
  Transmission Date: 20170207
  Serious: Yes (Hospitalization, Other)
  Sender: FDA-Public Use
  Company Number: PHHY2016US141907

PATIENT
  Age: 37 Year
  Sex: Female

DRUGS (3)
  1. TOPOTECAN HYDROCHLORIDE. [Suspect]
     Active Substance: TOPOTECAN HYDROCHLORIDE
     Dosage: 3.45 MG/M2, UNK
     Route: 041
  2. TOPOTECAN HYDROCHLORIDE. [Suspect]
     Active Substance: TOPOTECAN HYDROCHLORIDE
     Dosage: 3.94 MG/M2, UNK
     Route: 041
  3. TOPOTECAN HYDROCHLORIDE. [Suspect]
     Active Substance: TOPOTECAN HYDROCHLORIDE
     Indication: OVARIAN CANCER RECURRENT
     Dosage: 2.96 MG/M2, UNK
     Route: 041

REACTIONS (17)
  - Dry eye [Recovering/Resolving]
  - Diplopia [Recovering/Resolving]
  - Herpes zoster [Not Recovered/Not Resolved]
  - Rash pruritic [Recovering/Resolving]
  - Eyelid rash [Recovering/Resolving]
  - Rash [Recovering/Resolving]
  - Staphylococcal infection [Unknown]
  - Rash pustular [Recovering/Resolving]
  - Dermatitis [Recovering/Resolving]
  - Rash papular [Recovering/Resolving]
  - Eye irritation [Recovering/Resolving]
  - Acute febrile neutrophilic dermatosis [Recovering/Resolving]
  - Rash vesicular [Recovering/Resolving]
  - Papule [Recovering/Resolving]
  - Rash erythematous [Recovering/Resolving]
  - Conjunctivitis [Recovering/Resolving]
  - Vision blurred [Recovering/Resolving]
